FAERS Safety Report 5123010-8 (Version None)
Quarter: 2006Q4

REPORT INFORMATION
  Report Type: 
  Country: None (occurrence: None)
  Receive Date: 20061009
  Receipt Date: 20060926
  Transmission Date: 20070319
  Serious: Yes (Other)
  Sender: FDA-Public Use
  Company Number: US-AMGEN-US194747

PATIENT
  Sex: Male

DRUGS (10)
  1. ARANESP [Suspect]
     Indication: MYELODYSPLASTIC SYNDROME
     Route: 058
     Dates: start: 20060830, end: 20060926
  2. VERAPAMIL [Concomitant]
  3. LIPITOR [Concomitant]
  4. VOLTAREN [Concomitant]
  5. FLOMAX [Concomitant]
  6. ASPIRIN [Concomitant]
  7. GLUCOSAMINE [Concomitant]
  8. MULTIVITAMIN [Concomitant]
  9. VITAMIN E [Concomitant]
  10. FERROUS SULFATE TAB [Concomitant]

REACTIONS (2)
  - LACUNAR INFARCTION [None]
  - RETINAL VEIN OCCLUSION [None]
